FAERS Safety Report 25944202 (Version 2)
Quarter: 2025Q4

REPORT INFORMATION
  Report Type: Spontaneous
  Country: GB (occurrence: GB)
  Receive Date: 20251021
  Receipt Date: 20251111
  Transmission Date: 20260118
  Serious: Yes (Hospitalization)
  Sender: TEVA
  Company Number: GB-TEVA-VS-3382993

PATIENT
  Age: 59 Year
  Sex: Female

DRUGS (3)
  1. QUETIAPINE [Suspect]
     Active Substance: QUETIAPINE
     Indication: Psychotic disorder
     Dosage: ONCE AT NIGHT
     Route: 065
  2. ROPINIROLE [Suspect]
     Active Substance: ROPINIROLE
     Indication: Parkinson^s disease
     Route: 065
  3. CARBIDOPA LEVODOPA [Suspect]
     Active Substance: CARBIDOPA\LEVODOPA
     Indication: Parkinson^s disease
     Dosage: RECEIVED LEVODOPA/CARBIDOPA (SINEMET) 12.5/25, 2 TABLETS FOUR TIMES DAILY
     Route: 065

REACTIONS (2)
  - Parkinson^s disease psychosis [Unknown]
  - Treatment noncompliance [Unknown]
